FAERS Safety Report 24270838 (Version 2)
Quarter: 2024Q4

REPORT INFORMATION
  Report Type: Spontaneous
  Country: US (occurrence: US)
  Receive Date: 20240831
  Receipt Date: 20241018
  Transmission Date: 20250114
  Serious: Yes (Other)
  Sender: TEVA
  Company Number: US-TEVA-VS-3237161

PATIENT
  Age: 56 Year
  Sex: Female

DRUGS (16)
  1. METHOTREXATE [Suspect]
     Active Substance: METHOTREXATE
     Indication: Rheumatoid arthritis
     Dosage: YELLOW
     Route: 065
     Dates: start: 20231003, end: 20240824
  2. FOLIC ACID [Concomitant]
     Active Substance: FOLIC ACID
     Indication: Rheumatoid arthritis
     Route: 065
  3. METOPROLOL SUCCINATE [Concomitant]
     Active Substance: METOPROLOL SUCCINATE
     Indication: Cardiac disorder
     Dosage: TIME INTERVAL: 0.33333333 DAYS
     Route: 065
  4. AMLODIPINE BESYLATE [Concomitant]
     Active Substance: AMLODIPINE BESYLATE
     Indication: Cardiac disorder
     Route: 065
  5. PAROXETINE [Concomitant]
     Active Substance: PAROXETINE
     Indication: Anxiety
     Route: 065
  6. PRALUENT [Concomitant]
     Active Substance: ALIROCUMAB
     Indication: Blood cholesterol abnormal
     Dosage: 75MG/SYRINGE
     Route: 065
  7. ASPIRIN [Concomitant]
     Active Substance: ASPIRIN
     Indication: Cardiac disorder
     Route: 065
  8. ISOSORBIDE MONONITRATE [Concomitant]
     Active Substance: ISOSORBIDE MONONITRATE
     Indication: Cardiac disorder
     Route: 065
  9. LISINOPRIL [Concomitant]
     Active Substance: LISINOPRIL
     Indication: Cardiac disorder
     Route: 065
  10. HUMALOG [Concomitant]
     Active Substance: INSULIN LISPRO
     Indication: Diabetes mellitus
     Dosage: ALL DAY, PUMP
     Route: 065
  11. METHIMAZOLE [Concomitant]
     Active Substance: METHIMAZOLE
     Indication: Thyroid disorder
     Dosage: 3 TABLETS, M, W, F AND 2 TABLETS T, R, SA, SU
     Route: 065
  12. HUMIRA [Concomitant]
     Active Substance: ADALIMUMAB
     Indication: Rheumatoid arthritis
     Dosage: 40MG/SYRINGE
     Route: 065
  13. FUROSEMIDE [Concomitant]
     Active Substance: FUROSEMIDE
     Indication: Cardiac disorder
     Route: 065
  14. FAMOTIDINE [Concomitant]
     Active Substance: FAMOTIDINE
     Indication: Gastrooesophageal reflux disease
     Dosage: ONCE/TWICE A DAY
     Route: 065
  15. NITROGLYCERIN [Concomitant]
     Active Substance: NITROGLYCERIN
     Indication: Cardiac disorder
     Dosage: TIME INTERVAL: AS NECESSARY
     Route: 065
  16. BAQSIMI [Concomitant]
     Active Substance: GLUCAGON
     Indication: Diabetes mellitus
     Route: 065

REACTIONS (2)
  - Tibia fracture [Unknown]
  - Stress fracture [Unknown]

NARRATIVE: CASE EVENT DATE: 20240101
